FAERS Safety Report 23243777 (Version 2)
Quarter: 2024Q4

REPORT INFORMATION
  Report Type: Spontaneous
  Country: US (occurrence: US)
  Receive Date: 20231130
  Receipt Date: 20241118
  Transmission Date: 20250115
  Serious: No
  Sender: CHIESI
  Company Number: US-CHIESI-2023CHF02047

PATIENT
  Sex: Female

DRUGS (2)
  1. REVCOVI [Suspect]
     Active Substance: ELAPEGADEMASE-LVLR
     Indication: Combined immunodeficiency
     Dosage: (2.4 MG/1.5 ML) 2.24 MG, ONCE PER WEEK
     Route: 065
     Dates: start: 20210729
  2. REVCOVI [Suspect]
     Active Substance: ELAPEGADEMASE-LVLR
     Dosage: 2.24MG, ONE TIME PER WEEK
     Route: 065

REACTIONS (2)
  - Headache [Recovered/Resolved]
  - Lethargy [Not Recovered/Not Resolved]

NARRATIVE: CASE EVENT DATE: 20210101
